FAERS Safety Report 8478882-6 (Version None)
Quarter: 2012Q2

REPORT INFORMATION
  Report Type: 
  Country: None (occurrence: None)
  Receive Date: 20120629
  Receipt Date: 20120627
  Transmission Date: 20120825
  Serious: Yes (Death, Other)
  Sender: FDA-Public Use
  Company Number: GB-PFIZER INC-2012154567

PATIENT
  Age: 34 Year
  Sex: Male

DRUGS (3)
  1. VARENICLINE TARTRATE [Suspect]
     Dosage: 0.5 MG, 2X/DAY
     Route: 048
     Dates: start: 20100101, end: 20100101
  2. VARENICLINE TARTRATE [Suspect]
     Indication: SMOKING CESSATION THERAPY
     Dosage: 0.5 MG, DAILY DOSE
     Route: 048
     Dates: start: 20100101, end: 20100101
  3. VARENICLINE TARTRATE [Suspect]
     Dosage: 1 MG, 2X/DAY
     Route: 048
     Dates: start: 20100101

REACTIONS (14)
  - IRRITABILITY [None]
  - NEGATIVE THOUGHTS [None]
  - PERSONALITY CHANGE [None]
  - ANGER [None]
  - AGITATION [None]
  - ANXIETY [None]
  - ABNORMAL BEHAVIOUR [None]
  - SLEEP DISORDER [None]
  - INCREASED APPETITE [None]
  - DIARRHOEA [None]
  - COMPLETED SUICIDE [None]
  - BLOOD ETHANOL INCREASED [None]
  - FRUSTRATION [None]
  - NAUSEA [None]
